FAERS Safety Report 10952803 (Version 1)
Quarter: 2015Q1

REPORT INFORMATION
  Report Type: Spontaneous
  Country: None (occurrence: None)
  Receive Date: 20150226
  Receipt Date: 20150226
  Transmission Date: 20150721
  Serious: Yes (Other)
  Sender: FDA-Public Use
  Company Number: TPA2010A01462

PATIENT
  Age: 67 Year
  Sex: Male
  Weight: 68.95 kg

DRUGS (3)
  1. LIPITROR (ATORVASTATIN) [Concomitant]
  2. GLUCOSAMINE CHONDROITIN FLAX SEED OIL (GLUCOSAMINE, CHONDROITIN SULFATE) [Concomitant]
  3. PREVACID [Suspect]
     Active Substance: LANSOPRAZOLE
     Indication: GASTROOESOPHAGEAL REFLUX DISEASE
     Dosage: 1 IN 1 D
     Route: 048
     Dates: start: 20100226

REACTIONS (4)
  - Head injury [None]
  - Loss of consciousness [None]
  - Paraesthesia [None]
  - Gastrooesophageal reflux disease [None]
